FAERS Safety Report 16056548 (Version 1)
Quarter: 2019Q2

REPORT INFORMATION
  Report Type: Spontaneous
  Country: US (occurrence: US)
  Receive Date: 20190309
  Receipt Date: 20190309
  Transmission Date: 20190711
  Serious: Yes (Other)
  Sender: FDA-Public Use
  Company Number: None

PATIENT
  Age: 54 Year
  Sex: Male

DRUGS (1)
  1. AMLODIPINE BESYLATE TABS 5 MG. [Suspect]
     Active Substance: AMLODIPINE BESYLATE
     Indication: HYPERTENSION
     Dosage: ?          QUANTITY:180 TABLET(S);?
     Route: 048
     Dates: start: 20190130, end: 20190308

REACTIONS (3)
  - Product dispensing error [None]
  - Swelling [None]
  - Pain [None]

NARRATIVE: CASE EVENT DATE: 20190218
